FAERS Safety Report 12907238 (Version 1)
Quarter: 2016Q4

REPORT INFORMATION
  Report Type: Spontaneous
  Country: US (occurrence: US)
  Receive Date: 20161103
  Receipt Date: 20161103
  Transmission Date: 20170207
  Serious: Yes (Hospitalization)
  Sender: FDA-Public Use
  Company Number: US-IMPAX LABORATORIES, INC-2016-IPXL-01464

PATIENT
  Age: 32 Year
  Sex: Female

DRUGS (2)
  1. DEXTROAMPHET SACCHARAT, AMPHET ASPARTATE, DEXTROAMPHET SULFATE AND AMPHET SULFAT [Suspect]
     Active Substance: AMPHETAMINE ASPARTATE\AMPHETAMINE SULFATE\DEXTROAMPHETAMINE SACCHARATE\DEXTROAMPHETAMINE SULFATE
     Indication: ATTENTION DEFICIT/HYPERACTIVITY DISORDER
     Dosage: 30 MG, DAILY
     Route: 065
  2. DISULFIRAM. [Interacting]
     Active Substance: DISULFIRAM
     Indication: ALCOHOL PROBLEM
     Dosage: 250 MG, DAILY
     Route: 065

REACTIONS (2)
  - Drug interaction [Recovered/Resolved]
  - Delusion [Recovered/Resolved]
